FAERS Safety Report 5920907-3 (Version None)
Quarter: 2008Q4

REPORT INFORMATION
  Report Type: 
  Country: None (occurrence: None)
  Receive Date: 20081015
  Receipt Date: 20081015
  Transmission Date: 20090506
  Serious: Yes (Hospitalization)
  Sender: FDA-Public Use
  Company Number: None

PATIENT
  Age: 54 Year
  Sex: Male
  Weight: 81.6475 kg

DRUGS (1)
  1. HUMIRA [Suspect]
     Indication: ANKYLOSING SPONDYLITIS
     Dosage: EVERY OTHER WEEK SQ, APPROXIMATELY 3-4 YEARS
     Route: 058

REACTIONS (5)
  - ACID FAST BACILLI INFECTION [None]
  - BURSITIS [None]
  - CELLULITIS [None]
  - CULTURE WOUND POSITIVE [None]
  - WOUND NECROSIS [None]
